FAERS Safety Report 7605466-1 (Version None)
Quarter: 2011Q3

REPORT INFORMATION
  Report Type: 
  Country: None (occurrence: None)
  Receive Date: 20110713
  Receipt Date: 20110706
  Transmission Date: 20111222
  Serious: No
  Sender: FDA-Public Use
  Company Number: US-PFIZER INC-2011110567

PATIENT
  Sex: Male
  Weight: 109 kg

DRUGS (4)
  1. CIALIS [Suspect]
     Dosage: UNK
  2. SOMATULINE DEPOT [Suspect]
     Indication: ACROMEGALY
     Dosage: 90 MG, EVERY 28 DAYS
     Dates: start: 20110325
  3. SOMATULINE DEPOT [Suspect]
     Dosage: 120 MG, EVERY 28 DAYS
     Route: 058
     Dates: start: 20081001, end: 20100501
  4. SOMAVERT [Suspect]
     Indication: ACROMEGALY
     Dosage: UNK, 1X/DAY

REACTIONS (5)
  - PRURITUS [None]
  - DEHYDRATION [None]
  - MUSCLE SPASMS [None]
  - WEIGHT DECREASED [None]
  - BLOOD SODIUM DECREASED [None]
